FAERS Safety Report 8105648-9 (Version None)
Quarter: 2012Q1

REPORT INFORMATION
  Report Type: 
  Country: None (occurrence: None)
  Receive Date: 20120201
  Receipt Date: 20120119
  Transmission Date: 20120608
  Serious: Yes (Hospitalization)
  Sender: FDA-Public Use
  Company Number: PHHY2012BR001669

PATIENT
  Sex: Female
  Weight: 55 kg

DRUGS (6)
  1. CALCIUM [Concomitant]
     Indication: MINERAL SUPPLEMENTATION
     Dosage: 1 DF, QW
     Route: 048
  2. NIFEDIPINE [Concomitant]
     Indication: HYPERTENSION
     Dosage: 1 DF, BID
     Route: 048
  3. DIAZEPAM [Concomitant]
     Dosage: 10 MG, UNK
  4. GLUCOSAMINE W/CHONDROITIN [Concomitant]
     Indication: MINERAL SUPPLEMENTATION
     Dosage: 1 DF, BID
     Route: 048
     Dates: start: 20070101
  5. CALCIUM CARBONATE [Suspect]
     Indication: MINERAL SUPPLEMENTATION
     Dosage: 1 DF, BID
     Route: 048
     Dates: start: 20120103
  6. CAPTOPRIL [Concomitant]
     Indication: HYPERTENSION
     Dosage: 1 DF, BID
     Route: 048

REACTIONS (7)
  - SCAR [None]
  - UTERINE POLYP [None]
  - GAIT DISTURBANCE [None]
  - WEIGHT INCREASED [None]
  - BONE PAIN [None]
  - PRODUCT FORMULATION ISSUE [None]
  - HYPOKINESIA [None]
